FAERS Safety Report 9633452 (Version 3)
Quarter: 2015Q3

REPORT INFORMATION
  Report Type: Spontaneous
  Country: US (occurrence: US)
  Receive Date: 20131021
  Receipt Date: 20150707
  Transmission Date: 20151125
  Serious: No
  Sender: FDA-Public Use
  Company Number: US-009507513-1310USA006445

PATIENT
  Sex: Male
  Weight: 92.63 kg

DRUGS (2)
  1. PROPECIA [Suspect]
     Active Substance: FINASTERIDE
     Indication: ALOPECIA
     Dosage: 1 MG, UNK
     Route: 048
     Dates: start: 20000108, end: 20000410
  2. PROPECIA [Suspect]
     Active Substance: FINASTERIDE
     Dosage: 1 MG, UNK
     Route: 048
     Dates: start: 20060508, end: 20080229

REACTIONS (28)
  - Inguinal hernia [Unknown]
  - Erectile dysfunction [Not Recovered/Not Resolved]
  - Orchitis [Unknown]
  - Sexual dysfunction [Unknown]
  - Varicocele [Unknown]
  - Depression [Not Recovered/Not Resolved]
  - Male sterilisation [Unknown]
  - Seasonal allergy [Unknown]
  - Nocturia [Unknown]
  - Hernia [Unknown]
  - Anxiety [Not Recovered/Not Resolved]
  - Insomnia [Not Recovered/Not Resolved]
  - Sexual dysfunction [Not Recovered/Not Resolved]
  - Anxiety [Unknown]
  - Hypertension [Unknown]
  - Adverse drug reaction [Unknown]
  - Varicose vein [Unknown]
  - Urinary retention [Unknown]
  - Urinary retention [Unknown]
  - Epididymitis [Unknown]
  - Gastrooesophageal reflux disease [Unknown]
  - Pollakiuria [Unknown]
  - Benign prostatic hyperplasia [Unknown]
  - Fatigue [Unknown]
  - Prostatitis [Unknown]
  - Nasopharyngitis [Unknown]
  - Arthralgia [Unknown]
  - Testicular atrophy [Unknown]

NARRATIVE: CASE EVENT DATE: 200005
